FAERS Safety Report 19899805 (Version 1)
Quarter: 2021Q3

REPORT INFORMATION
  Report Type: Spontaneous
  Country: US (occurrence: US)
  Receive Date: 20210929
  Receipt Date: 20210929
  Transmission Date: 20211014
  Serious: No
  Sender: FDA-Public Use
  Company Number: None

PATIENT
  Age: 75 Year
  Sex: Male

DRUGS (1)
  1. TOBRAMYCIN (TOBRAMYCIN SO4 1.2GM/VIL INJ) [Suspect]
     Active Substance: TOBRAMYCIN SULFATE
     Dates: start: 20210805

REACTIONS (2)
  - Acute kidney injury [None]
  - Ototoxicity [None]

NARRATIVE: CASE EVENT DATE: 20210805
